FAERS Safety Report 17307658 (Version 3)
Quarter: 2020Q4

REPORT INFORMATION
  Report Type: Spontaneous
  Country: JP (occurrence: JP)
  Receive Date: 20200123
  Receipt Date: 20201001
  Transmission Date: 20210113
  Serious: Yes (Death)
  Sender: FDA-Public Use
  Company Number: JP-REGENERON PHARMACEUTICALS, INC.-2020-14025

PATIENT

DRUGS (16)
  1. EYLEA [Suspect]
     Active Substance: AFLIBERCEPT
     Dosage: LEFT EYE, 2 MG
     Route: 031
     Dates: start: 20171114, end: 20171114
  2. EYLEA [Suspect]
     Active Substance: AFLIBERCEPT
     Dosage: LEFT EYE, 2 MG
     Route: 031
     Dates: start: 20180116, end: 20180116
  3. EYLEA [Suspect]
     Active Substance: AFLIBERCEPT
     Dosage: LEFT EYE, 2 MG
     Route: 031
     Dates: start: 20180920, end: 20180920
  4. EYLEA [Suspect]
     Active Substance: AFLIBERCEPT
     Dosage: LEFT EYE, 2 MG
     Route: 031
     Dates: start: 20200107, end: 20200107
  5. EYLEA [Suspect]
     Active Substance: AFLIBERCEPT
     Dosage: LEFT EYE, 2 MG
     Route: 031
     Dates: start: 20180308, end: 20180308
  6. EYLEA [Suspect]
     Active Substance: AFLIBERCEPT
     Dosage: LEFT EYE, 2 MG
     Route: 031
     Dates: start: 20180703, end: 20180703
  7. EYLEA [Suspect]
     Active Substance: AFLIBERCEPT
     Dosage: LEFT EYE, 2 MG
     Route: 031
     Dates: start: 20181030, end: 20181030
  8. EYLEA [Suspect]
     Active Substance: AFLIBERCEPT
     Dosage: LEFT EYE, 2 MG
     Route: 031
     Dates: start: 20190625, end: 20190625
  9. EYLEA [Suspect]
     Active Substance: AFLIBERCEPT
     Dosage: LEFT EYE, 2 MG
     Route: 031
     Dates: start: 20180807, end: 20180807
  10. EYLEA [Suspect]
     Active Substance: AFLIBERCEPT
     Dosage: LEFT EYE, 2 MG
     Route: 031
     Dates: start: 20190115, end: 20190115
  11. EYLEA [Suspect]
     Active Substance: AFLIBERCEPT
     Dosage: LEFT EYE, 2 MG
     Route: 031
     Dates: start: 20191029, end: 20191029
  12. EYLEA [Suspect]
     Active Substance: AFLIBERCEPT
     Indication: NEOVASCULAR AGE-RELATED MACULAR DEGENERATION
     Dosage: LEFT EYE, 2 MG
     Route: 031
     Dates: start: 20170828, end: 20170828
  13. EYLEA [Suspect]
     Active Substance: AFLIBERCEPT
     Dosage: LEFT EYE, 2 MG
     Route: 031
     Dates: start: 20180510, end: 20180510
  14. EYLEA [Suspect]
     Active Substance: AFLIBERCEPT
     Dosage: LEFT EYE, 2 MG
     Route: 031
     Dates: start: 20190319, end: 20190319
  15. EYLEA [Suspect]
     Active Substance: AFLIBERCEPT
     Dosage: LEFT EYE, 2 MG
     Route: 031
     Dates: start: 20190507, end: 20190507
  16. EYLEA [Suspect]
     Active Substance: AFLIBERCEPT
     Dosage: LEFT EYE, 2 MG
     Route: 031
     Dates: start: 20190820, end: 20190820

REACTIONS (2)
  - Cardiac failure [Fatal]
  - Product use issue [Unknown]

NARRATIVE: CASE EVENT DATE: 20200117
